FAERS Safety Report 8504362 (Version 4)
Quarter: 2012Q4

REPORT INFORMATION
  Report Type: 
  Country: US (occurrence: US)
  Receive Date: 20120411
  Receipt Date: 20121120
  Transmission Date: 20130627
  Serious: Yes (Hospitalization)
  Sender: FDA-Public Use
  Company Number: US-ACTELION-A-US2010-34146

PATIENT
  Age: 48 Year
  Sex: Female

DRUGS (2)
  1. TRACLEER [Suspect]
     Indication: PULMONARY ARTERIAL HYPERTENSION
     Dosage: UNK
     Route: 048
  2. OXYGEN [Concomitant]

REACTIONS (16)
  - Tuberculosis [Unknown]
  - Gastrointestinal disorder [Unknown]
  - Staphylococcal infection [Unknown]
  - Influenza [Unknown]
  - Heart rate irregular [Unknown]
  - Blood pressure increased [Unknown]
  - Pneumonia [Unknown]
  - Heart rate decreased [Unknown]
  - Insomnia [Unknown]
  - Nausea [Unknown]
  - Cough [Unknown]
  - Chest pain [Unknown]
  - Dizziness [Unknown]
  - Dyspnoea [Unknown]
  - Feeling abnormal [Unknown]
  - Hypersensitivity [Unknown]
